FAERS Safety Report 24356624 (Version 1)
Quarter: 2024Q3

REPORT INFORMATION
  Report Type: Spontaneous
  Country: US (occurrence: US)
  Receive Date: 20240924
  Receipt Date: 20240924
  Transmission Date: 20241017
  Serious: Yes (Disabling, Other)
  Sender: HIKMA
  Company Number: US-MLMSERVICE-20240903-PI182623-00271-1

PATIENT
  Age: 4 Decade
  Sex: Male

DRUGS (2)
  1. PREDNISONE [Suspect]
     Active Substance: PREDNISONE
     Indication: Autoimmune haemolytic anaemia
     Dosage: UNK
     Route: 065
  2. PREDNISONE [Suspect]
     Active Substance: PREDNISONE
     Indication: Thrombocytopenia

REACTIONS (3)
  - Axonal neuropathy [Recovering/Resolving]
  - Condition aggravated [Recovering/Resolving]
  - Vitamin B12 deficiency [Recovering/Resolving]
